FAERS Safety Report 24450276 (Version 4)
Quarter: 2024Q4

REPORT INFORMATION
  Report Type: Spontaneous
  Country: US (occurrence: US)
  Receive Date: 20241017
  Receipt Date: 20241216
  Transmission Date: 20250114
  Serious: No
  Sender: PFIZER
  Company Number: US-PFIZER INC-202400273787

PATIENT
  Age: 10 Year
  Sex: Male
  Weight: 23.59 kg

DRUGS (1)
  1. GENOTROPIN [Suspect]
     Active Substance: SOMATROPIN
     Indication: Growth hormone deficiency
     Dosage: 1 MG, DAILY
     Dates: start: 202405

REACTIONS (2)
  - Device leakage [Unknown]
  - Device use error [Unknown]
